FAERS Safety Report 5242681-9 (Version None)
Quarter: 2007Q1

REPORT INFORMATION
  Report Type: 
  Country: None (occurrence: None)
  Receive Date: 20070214
  Receipt Date: 20070129
  Transmission Date: 20070707
  Serious: Yes (Death, Life-Threatening)
  Sender: FDA-Public Use
  Company Number: 2007RR-05578

PATIENT
  Age: 66 Year
  Sex: Female

DRUGS (7)
  1. DICLOFENAC SODIUM [Suspect]
     Indication: DRUG USE FOR UNKNOWN INDICATION
     Dosage: PRN, INTRAMUSCULAR
     Route: 030
  2. IBUPROFEN [Suspect]
     Indication: PAIN
     Dosage: 400 MG, TID, ORAL
     Route: 048
     Dates: start: 20060910, end: 20060911
  3. ASPIRIN [Concomitant]
  4. CLARITHROMYCIN [Concomitant]
  5. DOXYCYCLINE [Concomitant]
  6. SALBUTAMOL (SALBUTAMOL) [Concomitant]
  7. SEREVENT [Concomitant]

REACTIONS (2)
  - GASTRIC ULCER [None]
  - GASTROINTESTINAL HAEMORRHAGE [None]
